FAERS Safety Report 26102699 (Version 2)
Quarter: 2025Q4

REPORT INFORMATION
  Report Type: Report from Study
  Country: PY (occurrence: PY)
  Receive Date: 20251128
  Receipt Date: 20251209
  Transmission Date: 20260118
  Serious: Yes (Death)
  Sender: ROCHE
  Company Number: PY-ROCHE-10000447260

PATIENT
  Age: 4 Year
  Sex: Female

DRUGS (1)
  1. EVRYSDI [Suspect]
     Active Substance: RISDIPLAM
     Indication: Spinal muscular atrophy
     Dosage: 60MG/80 ML?FORMULATION: RECONSTITUTED POWDER?ROUTE: GASTRIC BUTTON
     Dates: start: 20220823

REACTIONS (1)
  - Death [Fatal]

NARRATIVE: CASE EVENT DATE: 20251124
